FAERS Safety Report 8193675-5 (Version None)
Quarter: 2012Q1

REPORT INFORMATION
  Report Type: 
  Country: None (occurrence: None)
  Receive Date: 20120308
  Receipt Date: 20120228
  Transmission Date: 20120608
  Serious: Yes (Hospitalization)
  Sender: FDA-Public Use
  Company Number: US-JNJFOC-20120300421

PATIENT
  Sex: Male
  Weight: 28.3 kg

DRUGS (13)
  1. OMEPRAZOLE [Concomitant]
  2. TRIAMCINOLONE [Concomitant]
  3. CHOLECALCIFEROL [Concomitant]
  4. ADALIMUMAB [Concomitant]
     Dates: start: 20100415
  5. PEPTAMEN [Concomitant]
  6. PREDNISONE TAB [Concomitant]
  7. REMICADE [Suspect]
     Indication: CROHN'S DISEASE
     Route: 042
     Dates: start: 20090602, end: 20100216
  8. MERCAPTOPURINE [Concomitant]
  9. ADALIMUMAB [Concomitant]
     Dates: start: 20120223
  10. HYOSCYAMINE [Concomitant]
  11. MUPIROCIN [Concomitant]
  12. MESALAMINE [Concomitant]
     Route: 048
  13. MIRALAX [Concomitant]

REACTIONS (1)
  - CONSTIPATION [None]
